FAERS Safety Report 5781810-5 (Version None)
Quarter: 2008Q2

REPORT INFORMATION
  Report Type: 
  Country: None (occurrence: None)
  Receive Date: 20080623
  Receipt Date: 20071023
  Transmission Date: 20081010
  Serious: No
  Sender: FDA-Public Use
  Company Number: US-ASTRAZENECA-2007UW21723

PATIENT
  Age: 30 Month
  Sex: Male
  Weight: 12.2 kg

DRUGS (2)
  1. RHINOCORT [Suspect]
     Route: 045
     Dates: start: 20070725
  2. AUGMENTIN '125' [Concomitant]
     Indication: IMPETIGO
     Dates: start: 20070806

REACTIONS (6)
  - ABNORMAL BEHAVIOUR [None]
  - ANGER [None]
  - ANOREXIA [None]
  - FLUSHING [None]
  - INSOMNIA [None]
  - PSYCHOMOTOR HYPERACTIVITY [None]
